FAERS Safety Report 19507154 (Version 1)
Quarter: 2021Q3

REPORT INFORMATION
  Report Type: Other
  Country: ES (occurrence: ES)
  Receive Date: 20210708
  Receipt Date: 20210708
  Transmission Date: 20211014
  Serious: Yes (Hospitalization)
  Sender: FDA-Public Use
  Company Number: ES-ROCHE-2864557

PATIENT
  Age: 61 Year
  Sex: Male

DRUGS (1)
  1. ATEZOLIZUMAB. [Suspect]
     Active Substance: ATEZOLIZUMAB
     Indication: TRANSITIONAL CELL CARCINOMA
     Route: 065

REACTIONS (9)
  - Asthenia [Not Recovered/Not Resolved]
  - Haematuria [Recovered/Resolved]
  - Dyspnoea [Recovered/Resolved]
  - Hypercalcaemia [Unknown]
  - Inflammation [Unknown]
  - Pain [Unknown]
  - Urinary tract infection [Unknown]
  - Anaemia [Recovered/Resolved with Sequelae]
  - Suprapubic pain [Recovered/Resolved with Sequelae]

NARRATIVE: CASE EVENT DATE: 20170925
